FAERS Safety Report 8103763-7 (Version None)
Quarter: 2011Q4

REPORT INFORMATION
  Report Type: 
  Country: None (occurrence: None)
  Receive Date: 20111222
  Receipt Date: 20110824
  Transmission Date: 20120403
  Serious: Yes (Hospitalization)
  Sender: FDA-Public Use
  Company Number: UTC-009715

PATIENT
  Age: 52 Year
  Sex: Female
  Weight: 52.27 kg

DRUGS (4)
  1. PLAVIX (COPIDOGREL SULFATE) [Concomitant]
  2. ASPIRIN [Concomitant]
  3. REVATIO [Concomitant]
  4. TYVASO [Suspect]
     Indication: PULMONARY HYPERTENSION
     Dosage: 216 MCG (54 MCG, 4 IN 1 D), INHALATION
     Route: 055
     Dates: start: 20110531

REACTIONS (4)
  - HAEMODIALYSIS-INDUCED SYMPTOM [None]
  - DYSPNOEA [None]
  - MYOCARDIAL INFARCTION [None]
  - COUGH [None]
